FAERS Safety Report 4776102-7 (Version None)
Quarter: 2005Q3

REPORT INFORMATION
  Report Type: 
  Country: None (occurrence: None)
  Receive Date: 20050914
  Receipt Date: 20050331
  Transmission Date: 20060218
  Serious: Yes (Death)
  Sender: FDA-Public Use
  Company Number: 163-20785-05040012

PATIENT
  Age: 77 Year
  Sex: Female

DRUGS (3)
  1. THALOMID [Suspect]
     Indication: METASTASES TO LIVER
     Dosage: 200 MG, QD, ORAL
     Route: 048
     Dates: start: 20041015, end: 20041213
  2. THALOMID [Suspect]
     Indication: METASTASES TO LUNG
     Dosage: 200 MG, QD, ORAL
     Route: 048
     Dates: start: 20041015, end: 20041213
  3. THALOMID [Suspect]
     Indication: RENAL CANCER METASTATIC
     Dosage: 200 MG, QD, ORAL
     Route: 048
     Dates: start: 20041015, end: 20041213

REACTIONS (1)
  - DEATH [None]
